FAERS Safety Report 7788211-9 (Version None)
Quarter: 2011Q3

REPORT INFORMATION
  Report Type: 
  Country: None (occurrence: None)
  Receive Date: 20110930
  Receipt Date: 20110921
  Transmission Date: 20111222
  Serious: Yes (Other)
  Sender: FDA-Public Use
  Company Number: US-JNJFOC-20110902846

PATIENT
  Sex: Female
  Weight: 65.32 kg

DRUGS (17)
  1. FENTANYL-100 [Suspect]
     Indication: BACK PAIN
     Dosage: NDC#0781-7240-55
     Route: 062
     Dates: start: 20110821, end: 20110801
  2. GLIMEPIRIDE [Concomitant]
     Indication: DIABETES MELLITUS
     Route: 048
  3. UNSPECIFIED NEBULIZER [Concomitant]
     Indication: RESPIRATORY DISORDER
     Route: 055
  4. DILTIAZEM HCL [Concomitant]
     Indication: CARDIAC DISORDER
     Route: 048
     Dates: start: 20100101
  5. ASPIRIN [Concomitant]
     Indication: CARDIAC DISORDER
     Route: 048
  6. PREDNISONE [Concomitant]
     Indication: CHRONIC OBSTRUCTIVE PULMONARY DISEASE
     Route: 048
     Dates: start: 20110101
  7. METAMUCIL-2 [Concomitant]
     Indication: GASTROINTESTINAL DISORDER
     Route: 048
  8. PREVACID [Concomitant]
     Indication: GASTRIC DISORDER
     Route: 048
  9. CALCIUM CARBONATE [Concomitant]
     Indication: OSTEOPOROSIS
     Route: 048
  10. FELODIPINE [Concomitant]
     Indication: HYPERTENSION
     Route: 048
  11. GLIMEPIRIDE [Concomitant]
     Route: 048
  12. XANAX [Concomitant]
     Indication: NERVOUS SYSTEM DISORDER
     Route: 048
  13. ALBUTEROL [Concomitant]
     Indication: CHRONIC OBSTRUCTIVE PULMONARY DISEASE
     Route: 055
  14. LIPITOR [Concomitant]
     Indication: BLOOD CHOLESTEROL INCREASED
     Route: 048
  15. JANUMET [Concomitant]
     Indication: DIABETES MELLITUS
     Dosage: 50-1000MG
     Route: 048
  16. VITAMIN D [Concomitant]
     Indication: OSTEOPOROSIS
     Dosage: 1000 UNITS
     Route: 048
  17. ADVAIR DISKUS 100/50 [Concomitant]
     Indication: CHRONIC OBSTRUCTIVE PULMONARY DISEASE
     Dosage: 250-50MG/POWDER AEROSOL
     Route: 055

REACTIONS (7)
  - HEADACHE [None]
  - FEELING ABNORMAL [None]
  - TREATMENT NONCOMPLIANCE [None]
  - CONSTIPATION [None]
  - DRUG EFFECT DECREASED [None]
  - DYSPNOEA [None]
  - INSOMNIA [None]
